FAERS Safety Report 6922628-7 (Version None)
Quarter: 2010Q3

REPORT INFORMATION
  Report Type: 
  Country: None (occurrence: None)
  Receive Date: 20100813
  Receipt Date: 20100805
  Transmission Date: 20110219
  Serious: Yes (Other)
  Sender: FDA-Public Use
  Company Number: GB-BRISTOL-MYERS SQUIBB COMPANY-15206519

PATIENT
  Age: 61 Year
  Sex: Male
  Weight: 98 kg

DRUGS (6)
  1. APROVEL [Suspect]
     Indication: HYPERTENSION
     Dosage: TOTAL DOSE OF 300 MG
     Route: 048
     Dates: start: 20091201, end: 20100501
  2. VITAMIN B [Concomitant]
     Indication: ALCOHOL PROBLEM
     Dosage: 1 DF=1 TABLET.
     Route: 048
     Dates: start: 20090517, end: 20100701
  3. METOPROLOL TARTRATE [Concomitant]
     Indication: HYPERTENSION
     Route: 048
     Dates: start: 20050519, end: 20100701
  4. DITROPAN [Concomitant]
  5. BECLOMETHASONE DIPROPIONATE [Concomitant]
     Route: 045
  6. FELODIPINE [Concomitant]
     Indication: HYPERTENSION
     Route: 048
     Dates: start: 20071205, end: 20100701

REACTIONS (4)
  - BLOOD PRESSURE FLUCTUATION [None]
  - HALLUCINATION [None]
  - NIGHTMARE [None]
  - SLEEP DISORDER [None]
